FAERS Safety Report 13904108 (Version 1)
Quarter: 2017Q3

REPORT INFORMATION
  Report Type: Spontaneous
  Country: US (occurrence: US)
  Receive Date: 20170825
  Receipt Date: 20170825
  Transmission Date: 20171127
  Serious: Yes (Other)
  Sender: FDA-Public Use
  Company Number: US-CELGENEUS-USA-20170804348

PATIENT
  Sex: Male

DRUGS (2)
  1. THALOMID [Suspect]
     Active Substance: THALIDOMIDE
     Dosage: 200 MILLIGRAM
     Route: 048
     Dates: start: 201703
  2. THALOMID [Suspect]
     Active Substance: THALIDOMIDE
     Indication: ACUTE FEBRILE NEUTROPHILIC DERMATOSIS
     Dosage: 100 MILLIGRAM
     Route: 048
     Dates: start: 201610

REACTIONS (1)
  - Joint injury [Unknown]
